FAERS Safety Report 6372797-5 (Version None)
Quarter: 2009Q3

REPORT INFORMATION
  Report Type: 
  Country: None (occurrence: None)
  Receive Date: 20090924
  Receipt Date: 20081208
  Transmission Date: 20100115
  Serious: No
  Sender: FDA-Public Use
  Company Number: US-ASTRAZENECA-2008UW25482

PATIENT
  Age: 29 Year
  Sex: Male

DRUGS (3)
  1. SEROQUEL [Suspect]
     Route: 048
     Dates: start: 20061023
  2. ZOLOFT [Concomitant]
  3. CLONAZEPAM [Concomitant]

REACTIONS (1)
  - NEUTROPHIL COUNT INCREASED [None]
